FAERS Safety Report 8108236-3 (Version None)
Quarter: 2012Q1

REPORT INFORMATION
  Report Type: 
  Country: None (occurrence: None)
  Receive Date: 20120202
  Receipt Date: 20120124
  Transmission Date: 20120608
  Serious: Yes (Death, Hospitalization)
  Sender: FDA-Public Use
  Company Number: US-BAXTER-2012BH000114

PATIENT
  Sex: Female

DRUGS (1)
  1. DIANEAL [Suspect]
     Indication: PERITONEAL DIALYSIS
     Route: 033
     Dates: end: 20120107

REACTIONS (5)
  - CARDIAC FAILURE [None]
  - ANAEMIA [None]
  - CARDIAC DISORDER [None]
  - HYPOKALAEMIA [None]
  - RENAL DISORDER [None]
